FAERS Safety Report 5427165-7 (Version None)
Quarter: 2007Q3

REPORT INFORMATION
  Report Type: 
  Country: None (occurrence: None)
  Receive Date: 20070828
  Receipt Date: 20070820
  Transmission Date: 20080115
  Serious: Yes (Hospitalization)
  Sender: FDA-Public Use
  Company Number: PHEH2007US09388

PATIENT
  Age: 82 Year
  Sex: Male

DRUGS (3)
  1. LOTREL [Suspect]
     Indication: HYPERTENSION
     Dosage: 5/10  MG, QD
     Route: 048
     Dates: start: 20070615, end: 20070623
  2. GLUCOVANCE [Concomitant]
     Indication: DIABETES MELLITUS
     Dosage: 2.5/500, BID
     Route: 048
  3. FLOMAX [Concomitant]
     Dosage: 0.4 MG, QD
     Route: 048

REACTIONS (9)
  - APHASIA [None]
  - CEREBROVASCULAR ACCIDENT [None]
  - DIZZINESS [None]
  - DYSPHASIA [None]
  - HYPOAESTHESIA [None]
  - MUSCULAR WEAKNESS [None]
  - NAUSEA [None]
  - PULMONARY MASS [None]
  - SYNCOPE [None]
